FAERS Safety Report 14368768 (Version 4)
Quarter: 2018Q4

REPORT INFORMATION
  Report Type: Spontaneous
  Country: US (occurrence: US)
  Receive Date: 20180109
  Receipt Date: 20181016
  Transmission Date: 20190204
  Serious: Yes (Other)
  Sender: FDA-Public Use
  Company Number: US-PFIZER INC-2017548356

PATIENT
  Age: 65 Year
  Sex: Female
  Weight: 62 kg

DRUGS (4)
  1. ATROPINE SULFATE/DIPHENOXYLATE HYDROCHLORIDE [Suspect]
     Active Substance: ATROPINE SULFATE\DIPHENOXYLATE HYDROCHLORIDE
     Indication: DIARRHOEA
     Dosage: UNK
     Dates: start: 20170212
  2. OMNICEF [Suspect]
     Active Substance: CEFDINIR
     Dosage: UNK
  3. FLAGYL [Suspect]
     Active Substance: METRONIDAZOLE\METRONIDAZOLE HYDROCHLORIDE
     Indication: CLOSTRIDIUM DIFFICILE COLITIS
  4. FLAGYL [Suspect]
     Active Substance: METRONIDAZOLE\METRONIDAZOLE HYDROCHLORIDE
     Indication: DIARRHOEA
     Dosage: 500 MG, UNK
     Dates: start: 20170214

REACTIONS (11)
  - Total lung capacity decreased [Unknown]
  - Pulmonary function test decreased [Unknown]
  - Dyspnoea [Not Recovered/Not Resolved]
  - Fatigue [Unknown]
  - Clostridium difficile colitis [Unknown]
  - Vomiting [Not Recovered/Not Resolved]
  - Drug ineffective [Recovered/Resolved]
  - Alopecia [Recovered/Resolved]
  - Chest pain [Unknown]
  - Malaise [Unknown]
  - Cough [Recovered/Resolved]

NARRATIVE: CASE EVENT DATE: 201702
